FAERS Safety Report 19444715 (Version 1)
Quarter: 2021Q2

REPORT INFORMATION
  Report Type: Spontaneous
  Country: US (occurrence: US)
  Receive Date: 20210621
  Receipt Date: 20210621
  Transmission Date: 20210717
  Serious: Yes (Other)
  Sender: FDA-Public Use
  Company Number: US-SA-2021SA203569

PATIENT
  Age: 55 Year
  Sex: Male

DRUGS (1)
  1. ZANTAC [Suspect]
     Active Substance: RANITIDINE HYDROCHLORIDE
     Indication: HYPERCHLORHYDRIA
     Dosage: UNK, QD
     Dates: start: 199201, end: 200912

REACTIONS (3)
  - Oesophageal carcinoma [Unknown]
  - Bladder cancer [Unknown]
  - Hepatic cancer stage IV [Unknown]

NARRATIVE: CASE EVENT DATE: 19980101
